FAERS Safety Report 4632680-X (Version None)
Quarter: 2005Q2

REPORT INFORMATION
  Report Type: 
  Country: None (occurrence: None)
  Receive Date: 20050331
  Receipt Date: 20041022
  Transmission Date: 20051028
  Serious: Yes (Other)
  Sender: FDA-Public Use
  Company Number: 200415145BCC

PATIENT
  Age: 54 Year
  Sex: Female
  Weight: 60.3284 kg

DRUGS (3)
  1. ALEVE [Suspect]
     Indication: PERIARTHRITIS
     Dosage: 220 MG, BID, ORAL
     Route: 048
     Dates: start: 20041005, end: 20041019
  2. ATENOLOL [Concomitant]
  3. CLIMARA ESTROGEN PATCH [Concomitant]

REACTIONS (4)
  - HYPERSENSITIVITY [None]
  - OEDEMA MOUTH [None]
  - SWOLLEN TONGUE [None]
  - URTICARIA [None]
